FAERS Safety Report 4393450-3 (Version None)
Quarter: 2004Q3

REPORT INFORMATION
  Report Type: 
  Country: None (occurrence: None)
  Receive Date: 20040701
  Receipt Date: 20040621
  Transmission Date: 20050211
  Serious: Yes (Hospitalization, Other)
  Sender: FDA-Public Use
  Company Number: 2002058671

PATIENT
  Age: 64 Year
  Sex: Male
  Weight: 55 kg

DRUGS (1)
  1. LIPITOR [Suspect]
     Indication: HYPERLIPIDAEMIA
     Dosage: 10 MG (DAILY), ORAL
     Route: 048
     Dates: start: 20001004, end: 20020911

REACTIONS (7)
  - ACUTE MYELOID LEUKAEMIA [None]
  - ADENOMYOSIS [None]
  - ANAEMIA MACROCYTIC [None]
  - CHOLECYSTITIS [None]
  - HAEMOLYTIC ANAEMIA [None]
  - MYELODYSPLASTIC SYNDROME [None]
  - SERUM FERRITIN INCREASED [None]
